FAERS Safety Report 15778002 (Version 1)
Quarter: 2018Q4

REPORT INFORMATION
  Report Type: Spontaneous
  Country: US (occurrence: US)
  Receive Date: 20181231
  Receipt Date: 20181231
  Transmission Date: 20190205
  Serious: Yes (Other)
  Sender: FDA-Public Use
  Company Number: None

PATIENT
  Age: 49 Year
  Sex: Female
  Weight: 52.2 kg

DRUGS (2)
  1. AIMOVIG [Suspect]
     Active Substance: ERENUMAB-AOOE
     Indication: MIGRAINE PROPHYLAXIS
     Dosage: ?          OTHER FREQUENCY:EVERY 4 WEEKS;?
     Route: 030
     Dates: start: 20180907, end: 20181231
  2. LEVOTHYROXINE 112 MCG [Concomitant]
     Active Substance: LEVOTHYROXINE
     Dates: start: 20150509

REACTIONS (3)
  - Impaired healing [None]
  - Blood parathyroid hormone decreased [None]
  - Alopecia [None]

NARRATIVE: CASE EVENT DATE: 20181026
